FAERS Safety Report 7793059-5 (Version None)
Quarter: 2011Q4

REPORT INFORMATION
  Report Type: 
  Country: None (occurrence: None)
  Receive Date: 20111003
  Receipt Date: 20110922
  Transmission Date: 20120403
  Serious: Yes (Hospitalization)
  Sender: FDA-Public Use
  Company Number: CA-JNJFOC-20110910469

PATIENT
  Sex: Female
  Weight: 39 kg

DRUGS (10)
  1. FERROUS CARBONATE [Concomitant]
     Route: 065
  2. VITAMIN B-12 [Concomitant]
     Route: 065
  3. ENTOCORT EC [Concomitant]
     Route: 048
  4. ACTONEL [Concomitant]
     Route: 065
  5. REMICADE [Suspect]
     Indication: CROHN'S DISEASE
     Route: 042
     Dates: start: 20080501
  6. PENTASA [Concomitant]
     Route: 065
  7. VITAMIN D [Concomitant]
     Route: 065
  8. FOLIC ACID [Concomitant]
     Route: 065
  9. CALCIUM CARBONATE [Concomitant]
     Route: 065
  10. POTASSIUM [Concomitant]
     Route: 048

REACTIONS (2)
  - INTESTINAL PERFORATION [None]
  - INTESTINAL OBSTRUCTION [None]
